FAERS Safety Report 22158723 (Version 1)
Quarter: 2023Q1

REPORT INFORMATION
  Report Type: Other
  Country: US (occurrence: US)
  Receive Date: 20230331
  Receipt Date: 20230331
  Transmission Date: 20230417
  Serious: Yes (Hospitalization, Other)
  Sender: FDA-Public Use
  Company Number: US-Bion-011388

PATIENT
  Age: 35 Year
  Sex: Female

DRUGS (3)
  1. KETOROLAC TROMETHAMINE [Suspect]
     Active Substance: KETOROLAC TROMETHAMINE
     Indication: Alcohol poisoning
  2. ONDANSETRON [Concomitant]
     Active Substance: ONDANSETRON
     Indication: Alcohol poisoning
  3. VITAMINS [Concomitant]
     Active Substance: VITAMINS
     Indication: Alcohol poisoning

REACTIONS (2)
  - Cardiac arrest [Not Recovered/Not Resolved]
  - Ventricular tachycardia [Not Recovered/Not Resolved]
